FAERS Safety Report 8096278-6 (Version None)
Quarter: 2012Q1

REPORT INFORMATION
  Report Type: 
  Country: None (occurrence: None)
  Receive Date: 20120129
  Receipt Date: 20111230
  Transmission Date: 20120608
  Serious: No
  Sender: FDA-Public Use
  Company Number: US-ABBOTT-12P-163-0888845-00

PATIENT
  Age: 61 Year
  Sex: Female

DRUGS (8)
  1. HUMIRA [Suspect]
     Indication: PSORIASIS
     Dates: start: 20111220
  2. ELMIRON [Concomitant]
     Indication: CYSTITIS INTERSTITIAL
  3. BUPROPION HYDROCHLORIDE [Concomitant]
     Indication: DEPRESSION
  4. LYRICA [Concomitant]
     Indication: PRODUCT USED FOR UNKNOWN INDICATION
  5. HYDROXYZINE [Concomitant]
     Indication: PRURITUS
  6. CYMBALTA [Concomitant]
     Indication: DEPRESSION
  7. CLONAZEPAM [Concomitant]
     Indication: ANXIETY
     Dosage: DAILY
  8. HYDROXYZINE [Concomitant]
     Indication: PSORIASIS

REACTIONS (3)
  - FEELING COLD [None]
  - OROPHARYNGEAL PAIN [None]
  - PAIN [None]
